FAERS Safety Report 20289565 (Version 3)
Quarter: 2022Q3

REPORT INFORMATION
  Report Type: Report from Study
  Country: NL (occurrence: NL)
  Receive Date: 20220104
  Receipt Date: 20220927
  Transmission Date: 20221026
  Serious: Yes (Hospitalization)
  Sender: FDA-Public Use
  Company Number: NL-NOVARTISPH-NVSC2021NL300656

PATIENT
  Age: 32 Year
  Sex: Male

DRUGS (4)
  1. ILARIS [Suspect]
     Active Substance: CANAKINUMAB
     Indication: Familial mediterranean fever
     Dosage: 1 DOSAGE FORM (ONCE EVERY 8 WEEKS)
     Route: 058
  2. ILARIS [Suspect]
     Active Substance: CANAKINUMAB
     Dosage: UNK
     Route: 058
     Dates: start: 20181008
  3. ILARIS [Suspect]
     Active Substance: CANAKINUMAB
     Dosage: UNK
     Route: 058
     Dates: start: 20220911
  4. ILARIS [Suspect]
     Active Substance: CANAKINUMAB
     Dosage: 1 DOSAGE FORM (ONCE EVERY 8 WEEKS)
     Route: 058
     Dates: start: 20220921

REACTIONS (4)
  - Subcutaneous abscess [Unknown]
  - Inflammation [Recovering/Resolving]
  - Infection [Recovering/Resolving]
  - Inappropriate schedule of product administration [Unknown]

NARRATIVE: CASE EVENT DATE: 20211227
